FAERS Safety Report 9995833 (Version 1)
Quarter: 2014Q1

REPORT INFORMATION
  Report Type: Spontaneous
  Country: FR (occurrence: FR)
  Receive Date: 20140311
  Receipt Date: 20140311
  Transmission Date: 20141002
  Serious: Yes (Other)
  Sender: FDA-Public Use
  Company Number: FR-CELGENEUS-056-50794-14024624

PATIENT
  Sex: Male
  Weight: 88 kg

DRUGS (1)
  1. VIDAZA [Suspect]
     Indication: CHRONIC MYELOMONOCYTIC LEUKAEMIA
     Route: 058
     Dates: start: 20120910, end: 20130108

REACTIONS (2)
  - Gastrointestinal disorder [Unknown]
  - General physical health deterioration [Unknown]
